FAERS Safety Report 25423863 (Version 1)
Quarter: 2025Q2

REPORT INFORMATION
  Report Type: Spontaneous
  Country: US (occurrence: US)
  Receive Date: 20250611
  Receipt Date: 20250611
  Transmission Date: 20250716
  Serious: No
  Sender: PIERRE FABRE MEDICAMENT
  Company Number: US-PFM-2024-06612

PATIENT
  Sex: Female
  Weight: 4.639 kg

DRUGS (1)
  1. HEMANGEOL [Suspect]
     Active Substance: PROPRANOLOL HYDROCHLORIDE
     Indication: Haemangioma
     Dosage: 0.8 ML, TID (3/DAY)

REACTIONS (4)
  - Insomnia [Unknown]
  - Nightmare [Unknown]
  - Inappropriate schedule of product administration [Unknown]
  - Off label use [Unknown]
